FAERS Safety Report 24169359 (Version 1)
Quarter: 2024Q3

REPORT INFORMATION
  Report Type: Spontaneous
  Country: DE (occurrence: DE)
  Receive Date: 20240802
  Receipt Date: 20240802
  Transmission Date: 20241017
  Serious: Yes (Death)
  Sender: TEVA
  Company Number: DE-DCGMA-24203591

PATIENT
  Age: 73 Year
  Sex: Female
  Weight: 93 kg

DRUGS (9)
  1. COTRIM [Suspect]
     Active Substance: SULFAMETHOXAZOLE\TRIMETHOPRIM
     Indication: Urinary tract infection
     Dosage: 960 MG TWICE DAILY
     Route: 048
  2. ASPIRIN [Concomitant]
     Active Substance: ASPIRIN
     Indication: Antiplatelet therapy
     Route: 048
  3. RISPERIDONE [Concomitant]
     Active Substance: RISPERIDONE
     Indication: Delirium
     Route: 048
  4. METAMIZOLE [Suspect]
     Active Substance: METAMIZOLE
     Indication: Procedural pain
     Route: 048
  5. CLOPIDOGREL [Concomitant]
     Active Substance: CLOPIDOGREL BISULFATE
     Indication: Peripheral arterial occlusive disease
     Route: 048
  6. MIDAZOLAM [Concomitant]
     Active Substance: MIDAZOLAM
     Indication: Delirium
     Dosage: 2.5 MG TWICE DAILY
     Route: 042
  7. MELPERONE [Concomitant]
     Active Substance: MELPERONE
     Indication: Delirium
     Route: 048
  8. HALOPERIDOL [Concomitant]
     Active Substance: HALOPERIDOL
     Indication: Delirium
     Dosage: 2.5 MG TWICE DAILY
     Route: 030
  9. ENOXAPARIN [Concomitant]
     Active Substance: ENOXAPARIN
     Indication: Thrombosis prophylaxis
     Route: 058

REACTIONS (3)
  - Hypersensitivity [Fatal]
  - Leukopenia [Fatal]
  - Agranulocytosis [Fatal]

NARRATIVE: CASE EVENT DATE: 20240626
